FAERS Safety Report 5597049-2 (Version None)
Quarter: 2008Q1

REPORT INFORMATION
  Report Type: 
  Country: None (occurrence: None)
  Receive Date: 20080121
  Receipt Date: 20080108
  Transmission Date: 20080703
  Serious: Yes (Death)
  Sender: FDA-Public Use
  Company Number: US-TEVA-166484USA

PATIENT
  Sex: Female

DRUGS (3)
  1. NIFEDIPINE 10 MG CAPSULES [Suspect]
  2. VENLAFAXINE HCL [Suspect]
  3. QUINAPRIL HCL [Suspect]

REACTIONS (1)
  - OVERDOSE [None]
